FAERS Safety Report 7888015-2 (Version None)
Quarter: 2011Q4

REPORT INFORMATION
  Report Type: 
  Country: None (occurrence: None)
  Receive Date: 20111103
  Receipt Date: 20111025
  Transmission Date: 20120403
  Serious: Yes (Hospitalization, Other)
  Sender: FDA-Public Use
  Company Number: US-JNJFOC-20111011269

PATIENT
  Sex: Female
  Weight: 88.45 kg

DRUGS (2)
  1. REMICADE [Suspect]
     Indication: RHEUMATOID ARTHRITIS
     Route: 042
     Dates: end: 20110306
  2. METHOTREXATE [Concomitant]
     Indication: RHEUMATOID ARTHRITIS
     Route: 048
     Dates: end: 20110401

REACTIONS (8)
  - SPINAL CORD OEDEMA [None]
  - BREAST CANCER [None]
  - MUSCULOSKELETAL PAIN [None]
  - SPINAL OSTEOARTHRITIS [None]
  - ARTHRALGIA [None]
  - JOINT SWELLING [None]
  - CERVICAL SPINAL STENOSIS [None]
  - SPINAL CORD COMPRESSION [None]
